FAERS Safety Report 8923437 (Version 1)
Quarter: 2012Q4

REPORT INFORMATION
  Report Type: 
  Country: US (occurrence: US)
  Receive Date: 20121124
  Receipt Date: 20121124
  Transmission Date: 20130627
  Serious: Yes (Life-Threatening, Hospitalization)
  Sender: FDA-Public Use
  Company Number: US-009507513-1211USA008412

PATIENT
  Age: 31 Year
  Sex: Female
  Weight: 56.69 kg

DRUGS (2)
  1. NUVARING [Suspect]
     Indication: CONTRACEPTION
     Dosage: 0.015/0.12 units unspecified, 1 ring for 3 weeks on and 1week off
     Route: 067
     Dates: start: 201105, end: 20120712
  2. CELEXA [Concomitant]
     Dosage: 20 mg, UNK

REACTIONS (1)
  - Cerebrovascular accident [Recovered/Resolved]
